FAERS Safety Report 4383326-X (Version None)
Quarter: 2004Q2

REPORT INFORMATION
  Report Type: 
  Country: None (occurrence: None)
  Receive Date: 20040618
  Receipt Date: 20040602
  Transmission Date: 20050107
  Serious: Yes (Other)
  Sender: FDA-Public Use
  Company Number: USA040669098

PATIENT
  Age: 70 Year
  Sex: Female
  Weight: 98 kg

DRUGS (3)
  1. HUMALOG [Suspect]
  2. HUMULIN N [Suspect]
     Dosage: 15 U DAY
  3. ACTOS [Concomitant]

REACTIONS (5)
  - BODY HEIGHT DECREASED [None]
  - CATARACT [None]
  - EYE HAEMORRHAGE [None]
  - OSTEOPOROSIS [None]
  - VISUAL DISTURBANCE [None]
